FAERS Safety Report 20154117 (Version 2)
Quarter: 2025Q4

REPORT INFORMATION
  Report Type: Spontaneous
  Country: CA (occurrence: CA)
  Receive Date: 20211207
  Receipt Date: 20251031
  Transmission Date: 20260118
  Serious: Yes (Hospitalization, Other)
  Sender: AUROBINDO
  Company Number: CA-AUROBINDO-AUR-APL-2021-049967

PATIENT
  Age: 31 Year
  Sex: Female

DRUGS (9)
  1. SERTRALINE [Interacting]
     Active Substance: SERTRALINE HYDROCHLORIDE
     Indication: Product used for unknown indication
     Dosage: UNK
     Route: 065
  2. OXYMETAZOLINE HYDROCHLORIDE [Interacting]
     Active Substance: OXYMETAZOLINE HYDROCHLORIDE
     Indication: Nasal congestion
     Dosage: 3 DOSAGE FORM, TWO TIMES A DAY (2?3 SPRAYS TWICE DAILY)
     Route: 045
  3. OXYMETAZOLINE HYDROCHLORIDE [Interacting]
     Active Substance: OXYMETAZOLINE HYDROCHLORIDE
     Dosage: 3 DOSAGE FORM
     Route: 045
  4. PEPTO-BISMOL [Concomitant]
     Active Substance: BISMUTH SUBSALICYLATE
     Indication: Product used for unknown indication
     Dosage: UNK
     Route: 065
  5. DOMPERIDONE [Concomitant]
     Active Substance: DOMPERIDONE
     Indication: Product used for unknown indication
     Dosage: UNK
     Route: 065
  6. LANSOPRAZOLE [Concomitant]
     Active Substance: LANSOPRAZOLE
     Indication: Product used for unknown indication
     Dosage: UNK
     Route: 065
  7. ONDANSETRON [Concomitant]
     Active Substance: ONDANSETRON
     Indication: Nausea
     Dosage: UNK
     Route: 065
  8. ONDANSETRON [Concomitant]
     Active Substance: ONDANSETRON
     Indication: Vomiting
  9. NIMODIPINE [Concomitant]
     Active Substance: NIMODIPINE
     Indication: Headache
     Dosage: UNK
     Route: 065

REACTIONS (4)
  - Cerebral vasoconstriction [Recovering/Resolving]
  - Thunderclap headache [Recovered/Resolved]
  - Reversible cerebral vasoconstriction syndrome [Recovered/Resolved]
  - Drug interaction [Recovered/Resolved]
